FAERS Safety Report 9285661 (Version 1)
Quarter: 2013Q2

REPORT INFORMATION
  Report Type: Report from Study
  Country: BR (occurrence: BR)
  Receive Date: 20130513
  Receipt Date: 20130513
  Transmission Date: 20140414
  Serious: Yes (Hospitalization, Other)
  Sender: FDA-Public Use
  Company Number: BR-US-EMD SERONO, INC.-7209659

PATIENT
  Age: 39 Year
  Sex: Female

DRUGS (1)
  1. REBIF [Suspect]
     Indication: RELAPSING-REMITTING MULTIPLE SCLEROSIS
     Dates: start: 20120709, end: 20130415

REACTIONS (6)
  - Sepsis [Unknown]
  - Poisoning [Unknown]
  - Urinary tract infection [Unknown]
  - Micturition urgency [Unknown]
  - Vomiting [Unknown]
  - Headache [Unknown]
